FAERS Safety Report 9505957 (Version 1)
Quarter: 2013Q1

REPORT INFORMATION
  Report Type: Spontaneous
  Country: US (occurrence: None)
  Receive Date: 20130305
  Receipt Date: 20130305
  Transmission Date: 20140127
  Serious: No
  Sender: FDA-Public Use
  Company Number: 1000041100

PATIENT
  Age: 79 Year
  Sex: Female
  Weight: 90 kg

DRUGS (12)
  1. DALIRESP (ROFLUMILAST) [Suspect]
     Indication: CHRONIC OBSTRUCTIVE PULMONARY DISEASE
     Dates: start: 201211, end: 2012
  2. LEVOTHYROXINE (LEVOTHYROXINE) [Suspect]
  3. AMLODIPINE (AMLODIPINE) [Concomitant]
  4. LOSARTAN [Suspect]
  5. DIAZEPAM [Suspect]
  6. LASIX (FUROSEMIDE) [Suspect]
  7. CITALOPRAM [Suspect]
  8. METFORMIN (METFORMIN) [Suspect]
  9. INSULIN (INSULIN) [Suspect]
  10. KLOR-CON [Suspect]
  11. ASPIRIN (ACETYLSALICYLIC ACID) [Suspect]
  12. XANAX (ALPRAZOLAM) [Suspect]

REACTIONS (2)
  - Diarrhoea [None]
  - Weight decreased [None]
